FAERS Safety Report 4491077-6 (Version None)
Quarter: 2004Q4

REPORT INFORMATION
  Report Type: 
  Country: None (occurrence: None)
  Receive Date: 20041027
  Receipt Date: 20041012
  Transmission Date: 20050328
  Serious: Yes (Death, Other)
  Sender: FDA-Public Use
  Company Number: 2004-00565

PATIENT
  Age: 73 Year
  Sex: Male

DRUGS (2)
  1. VELCADE [Suspect]
     Indication: MULTIPLE MYELOMA
     Dates: start: 20040330, end: 20040608
  2. BETA BLOCKING AGENTS [Concomitant]

REACTIONS (6)
  - GENITAL PAIN [None]
  - INFECTION IN AN IMMUNOCOMPROMISED HOST [None]
  - MULTI-ORGAN FAILURE [None]
  - PAIN OF SKIN [None]
  - POLYNEUROPATHY [None]
  - SEPSIS [None]
